FAERS Safety Report 17881192 (Version 1)
Quarter: 2020Q2

REPORT INFORMATION
  Report Type: Spontaneous
  Country: AU (occurrence: AU)
  Receive Date: 20200610
  Receipt Date: 20200610
  Transmission Date: 20200714
  Serious: No
  Sender: FDA-Public Use
  Company Number: AU-TOLMAR, INC.-20AU020112

PATIENT
  Sex: Male

DRUGS (1)
  1. ELIGARD [Suspect]
     Active Substance: LEUPROLIDE ACETATE
     Indication: PROSTATE CANCER
     Dosage: 45 MG, Q 6 MONTH
     Route: 062

REACTIONS (5)
  - Intercepted product preparation error [None]
  - Wrong technique in product usage process [None]
  - Incorrect route of product administration [None]
  - Inappropriate schedule of product administration [None]
  - Syringe issue [None]

NARRATIVE: CASE EVENT DATE: 20200123
